FAERS Safety Report 11013342 (Version 2)
Quarter: 2015Q2

REPORT INFORMATION
  Report Type: Spontaneous
  Country: US (occurrence: US)
  Receive Date: 20150411
  Receipt Date: 20150525
  Transmission Date: 20150821
  Serious: No
  Sender: FDA-Public Use
  Company Number: US-JNJFOC-20121102962

PATIENT

DRUGS (1)
  1. REMICADE [Suspect]
     Active Substance: INFLIXIMAB
     Indication: COLITIS
     Dosage: PATIENT HAD 2 INFUSIONS
     Route: 042

REACTIONS (3)
  - Rash [Unknown]
  - Infusion related reaction [Unknown]
  - Feeling hot [Unknown]
